FAERS Safety Report 23844280 (Version 4)
Quarter: 2024Q2

REPORT INFORMATION
  Report Type: Report from Study
  Country: BR (occurrence: BR)
  Receive Date: 20240510
  Receipt Date: 20240628
  Transmission Date: 20240716
  Serious: Yes (Other)
  Sender: FDA-Public Use
  Company Number: BR-SANDOZ-SDZ2024BR009576

PATIENT
  Age: 58 Year
  Sex: Female

DRUGS (2)
  1. HYRIMOZ [Suspect]
     Active Substance: ADALIMUMAB-ADAZ
     Indication: Product used for unknown indication
     Dosage: UNK
     Route: 065
  2. HYRIMOZ [Suspect]
     Active Substance: ADALIMUMAB-ADAZ
     Dosage: UNK (40MG/0.8ML)
     Route: 065

REACTIONS (11)
  - Eyelid disorder [Recovering/Resolving]
  - Hyperhidrosis [Recovered/Resolved]
  - Fatigue [Recovered/Resolved]
  - Asthenia [Recovered/Resolved]
  - Tremor [Recovered/Resolved]
  - Neck mass [Recovering/Resolving]
  - Somnolence [Unknown]
  - Hyperhidrosis [Unknown]
  - Influenza [Not Recovered/Not Resolved]
  - Impaired healing [Not Recovered/Not Resolved]
  - Post procedural inflammation [Unknown]

NARRATIVE: CASE EVENT DATE: 20240124
